FAERS Safety Report 5794210-9 (Version None)
Quarter: 2008Q2

REPORT INFORMATION
  Report Type: 
  Country: None (occurrence: None)
  Receive Date: 20080627
  Receipt Date: 20080618
  Transmission Date: 20081010
  Serious: Yes (Other)
  Sender: FDA-Public Use
  Company Number: US-PFIZER INC-2008051464

PATIENT

DRUGS (4)
  1. GEODON [Suspect]
  2. LAMICTAL [Concomitant]
  3. CELEXA [Concomitant]
  4. DEPAKOTE [Concomitant]

REACTIONS (2)
  - BRUXISM [None]
  - TARDIVE DYSKINESIA [None]
